FAERS Safety Report 13939413 (Version 1)
Quarter: 2017Q3

REPORT INFORMATION
  Report Type: Spontaneous
  Country: GB (occurrence: GB)
  Receive Date: 20170906
  Receipt Date: 20170906
  Transmission Date: 20171127
  Serious: Yes (Disabling, Other)
  Sender: FDA-Public Use
  Company Number: GB-ACCORD-058023

PATIENT
  Age: 27 Year
  Sex: Female
  Weight: 64 kg

DRUGS (4)
  1. AMITRIPTYLINE [Suspect]
     Active Substance: AMITRIPTYLINE
     Indication: PRODUCT USED FOR UNKNOWN INDICATION
     Route: 048
     Dates: start: 20170810, end: 20170816
  2. DIETHANOLAMINE FUSIDATE/FUSIDATE SODIUM/FUSIDIC ACID [Concomitant]
     Dates: start: 20150410
  3. NYSTAN [Concomitant]
     Active Substance: NYSTATIN
     Dosage: AFTER MEALS
     Dates: start: 20170626, end: 20170703
  4. YASMIN [Concomitant]
     Active Substance: DROSPIRENONE\ETHINYL ESTRADIOL
     Dosage: TAKE ONE AS DIRECTED
     Dates: start: 20170627

REACTIONS (2)
  - Breast enlargement [Unknown]
  - Breast disorder [Unknown]

NARRATIVE: CASE EVENT DATE: 20170814
